FAERS Safety Report 12214536 (Version 2)
Quarter: 2018Q1

REPORT INFORMATION
  Report Type: Spontaneous
  Country: US (occurrence: US)
  Receive Date: 20160328
  Receipt Date: 20180314
  Transmission Date: 20180508
  Serious: Yes (Hospitalization)
  Sender: FDA-Public Use
  Company Number: US-BIOGEN-2016BI00209543

PATIENT
  Age: 36 Year
  Sex: Female

DRUGS (1)
  1. PLEGRIDY [Suspect]
     Active Substance: PEGINTERFERON BETA-1A
     Indication: MULTIPLE SCLEROSIS
     Route: 058
     Dates: start: 20150909, end: 20160425

REACTIONS (8)
  - Heart rate decreased [Recovered/Resolved]
  - Seizure [Recovered/Resolved]
  - Neoplasm skin [Unknown]
  - Electroencephalogram abnormal [Unknown]
  - Loss of consciousness [Recovered/Resolved]
  - Central nervous system lesion [Recovered/Resolved]
  - Disorientation [Recovered/Resolved]
  - Multiple sclerosis relapse [Recovered/Resolved]

NARRATIVE: CASE EVENT DATE: 20150910
